FAERS Safety Report 4305567-X (Version None)
Quarter: 2004Q1

REPORT INFORMATION
  Report Type: 
  Country: None (occurrence: None)
  Receive Date: 20040226
  Receipt Date: 20031202
  Transmission Date: 20041129
  Serious: Yes (Hospitalization)
  Sender: FDA-Public Use
  Company Number: US-BRISTOL-MYERS SQUIBB COMPANY-12447199

PATIENT
  Age: 51 Year
  Sex: Female
  Weight: 84 kg

DRUGS (6)
  1. ABILIFY [Suspect]
     Indication: BIPOLAR DISORDER
     Dosage: 15MG FOR 2 WEEKS THEN SWITCHED TO 15MG ALTERNATE DAYS AND 7.5MG ON ALTERNATE DAYS
     Route: 048
  2. DEPAKOTE [Concomitant]
  3. SYNTHROID [Concomitant]
  4. GLUCOVANCE [Concomitant]
  5. XANAX [Concomitant]
  6. ADVICOR [Concomitant]

REACTIONS (1)
  - TREMOR [None]
